FAERS Safety Report 5826437-1 (Version None)
Quarter: 2008Q3

REPORT INFORMATION
  Report Type: 
  Country: None (occurrence: None)
  Receive Date: 20080729
  Receipt Date: 20080623
  Transmission Date: 20090109
  Serious: Yes (Hospitalization, Other)
  Sender: FDA-Public Use
  Company Number: FR-GENENTECH-263714

PATIENT
  Sex: Female

DRUGS (2)
  1. AVASTIN [Suspect]
     Indication: BREAST CANCER
     Dosage: 365 MG, UNK
     Route: 042
     Dates: start: 20080527
  2. TAXOL [Concomitant]
     Indication: DRUG USE FOR UNKNOWN INDICATION

REACTIONS (3)
  - CONFUSIONAL STATE [None]
  - HERPES ZOSTER [None]
  - RENAL FAILURE ACUTE [None]
